FAERS Safety Report 5507650-X (Version None)
Quarter: 2007Q4

REPORT INFORMATION
  Report Type: 
  Country: None (occurrence: None)
  Receive Date: 20071106
  Receipt Date: 20071026
  Transmission Date: 20080405
  Serious: Yes (Hospitalization)
  Sender: FDA-Public Use
  Company Number: JP-NOVOPROD-268914

PATIENT
  Age: 69 Year
  Sex: Male

DRUGS (2)
  1. NOVORAPID 30 MIX CHU [Suspect]
     Indication: DIABETES MELLITUS
     Dosage: UNK, BID
     Route: 058
  2. HYDROCORTISONE [Concomitant]
     Indication: ADRENAL INSUFFICIENCY

REACTIONS (2)
  - ADRENAL INSUFFICIENCY [None]
  - AUTONOMIC NERVOUS SYSTEM IMBALANCE [None]
